FAERS Safety Report 4796200-1 (Version None)
Quarter: 2005Q3

REPORT INFORMATION
  Report Type: 
  Country: None (occurrence: None)
  Receive Date: 20050916
  Receipt Date: 20050706
  Transmission Date: 20060218
  Serious: Yes (Hospitalization)
  Sender: FDA-Public Use
  Company Number: US-JNJFOC-20041200076

PATIENT
  Age: 45 Year
  Sex: Female
  Weight: 49.6689 kg

DRUGS (5)
  1. ORTHO EVRA [Suspect]
     Indication: CONTRACEPTION
     Dosage: 1 DOSE(S), 3 IN 4 WEEK, TRANSDERMAL
     Route: 062
     Dates: start: 20040713, end: 20040918
  2. NORTRIPTYLINE (NORTRIPTYLINE) CAPSULES [Concomitant]
  3. PLAVIX [Concomitant]
  4. BABY ASPIRIN (ACETYLSALICYLIC ACID) TABLETS [Concomitant]
  5. MVI (MULTIVITAMINS) TABLETS [Concomitant]

REACTIONS (2)
  - CEREBROVASCULAR ACCIDENT [None]
  - TRANSIENT ISCHAEMIC ATTACK [None]
